FAERS Safety Report 4386605-5 (Version None)
Quarter: 2004Q2

REPORT INFORMATION
  Report Type: 
  Country: None (occurrence: None)
  Receive Date: 20040629
  Receipt Date: 20040311
  Transmission Date: 20050107
  Serious: Yes (Hospitalization)
  Sender: FDA-Public Use
  Company Number: FR-GLAXOSMITHKLINE-B0326492A

PATIENT
  Age: 40 Year
  Sex: Male
  Weight: 95 kg

DRUGS (6)
  1. ZIAGEN [Suspect]
     Indication: HIV INFECTION
     Dosage: 2TAB PER DAY
     Route: 048
     Dates: start: 20031105, end: 20031208
  2. VIDEX [Suspect]
     Indication: HIV INFECTION
     Dosage: 400MG PER DAY
     Route: 048
     Dates: start: 20031105, end: 20031208
  3. VIRACEPT [Concomitant]
     Indication: HIV INFECTION
     Dosage: 1250MG TWICE PER DAY
     Route: 048
     Dates: start: 20031105
  4. EPIVIR [Concomitant]
     Indication: HIV INFECTION
     Route: 048
     Dates: start: 20031217
  5. VIREAD [Concomitant]
     Indication: HIV INFECTION
     Route: 048
     Dates: start: 20031217
  6. INNOHEP [Concomitant]
     Route: 048
     Dates: start: 20031217

REACTIONS (5)
  - CONJUNCTIVAL HAEMORRHAGE [None]
  - HEADACHE [None]
  - HEPATITIS [None]
  - JAUNDICE [None]
  - VOMITING [None]
